FAERS Safety Report 12724212 (Version 1)
Quarter: 2016Q3

REPORT INFORMATION
  Report Type: Spontaneous
  Country: CN (occurrence: CN)
  Receive Date: 20160908
  Receipt Date: 20160908
  Transmission Date: 20161109
  Serious: Yes (Hospitalization)
  Sender: FDA-Public Use
  Company Number: CN-ABBVIE-16P-035-1721240-00

PATIENT
  Age: 34 Year
  Sex: Female

DRUGS (5)
  1. KLACID [Suspect]
     Active Substance: CLARITHROMYCIN
     Indication: PULMONARY TUBERCULOSIS
     Route: 048
     Dates: start: 20151220, end: 20160325
  2. PYRAZINAMIDE. [Suspect]
     Active Substance: PYRAZINAMIDE
     Indication: PULMONARY TUBERCULOSIS
     Route: 048
     Dates: start: 20151220, end: 20160325
  3. PROTIONAMIDE [Suspect]
     Active Substance: PROTIONAMIDE
     Indication: PULMONARY TUBERCULOSIS
     Route: 048
     Dates: start: 20151220, end: 20160325
  4. AMIKACIN SULFATE. [Concomitant]
     Active Substance: AMIKACIN SULFATE
     Indication: PULMONARY TUBERCULOSIS
     Route: 030
     Dates: start: 20151220, end: 20160325
  5. CRAVIT [Concomitant]
     Active Substance: LEVOFLOXACIN
     Indication: PULMONARY TUBERCULOSIS
     Route: 048
     Dates: start: 20151220, end: 20160325

REACTIONS (1)
  - Hepatic function abnormal [Recovering/Resolving]

NARRATIVE: CASE EVENT DATE: 20160325
